FAERS Safety Report 21312388 (Version 1)
Quarter: 2022Q3

REPORT INFORMATION
  Report Type: Spontaneous
  Country: US (occurrence: None)
  Receive Date: 20220909
  Receipt Date: 20220909
  Transmission Date: 20221027
  Serious: No
  Sender: FDA-Public Use
  Company Number: US-ARIS GLOBAL-202206-1036

PATIENT
  Sex: Female

DRUGS (9)
  1. OXERVATE [Suspect]
     Active Substance: CENEGERMIN-BKBJ
     Indication: Neurotrophic keratopathy
     Route: 047
     Dates: start: 20220531
  2. XIIDRA [Concomitant]
     Active Substance: LIFITEGRAST
  3. SOOTHE-XP [Concomitant]
     Dosage: 1%-4.5%
  4. VITAMIN B12 [Concomitant]
     Active Substance: CYANOCOBALAMIN
  5. FISH OIL [Concomitant]
     Active Substance: FISH OIL
  6. FLAXSEED [Concomitant]
     Active Substance: FLAX SEED
     Dosage: 1300-670MG
  7. VITAMIN C [Concomitant]
     Active Substance: ASCORBIC ACID
  8. FAMOTIDINE [Concomitant]
     Active Substance: FAMOTIDINE
  9. URSODIOL [Concomitant]
     Active Substance: URSODIOL

REACTIONS (8)
  - Eye pain [Unknown]
  - Ocular hyperaemia [Unknown]
  - Foreign body sensation in eyes [Unknown]
  - Wrong technique in product usage process [Recovered/Resolved]
  - Ocular discomfort [Unknown]
  - Photophobia [Unknown]
  - Eye irritation [Unknown]
  - Headache [Unknown]
